FAERS Safety Report 7568420-4 (Version None)
Quarter: 2011Q2

REPORT INFORMATION
  Report Type: 
  Country: None (occurrence: None)
  Receive Date: 20110623
  Receipt Date: 20110615
  Transmission Date: 20111010
  Serious: Yes (Other)
  Sender: FDA-Public Use
  Company Number: AU-ROCHE-782916

PATIENT

DRUGS (2)
  1. PEGASYS [Suspect]
     Route: 065
  2. RIBAVIRIN [Suspect]
     Route: 065

REACTIONS (5)
  - THYROXINE FREE INCREASED [None]
  - BLOOD THYROID STIMULATING HORMONE DECREASED [None]
  - THYROIDITIS [None]
  - NEUTROPENIA [None]
  - TRI-IODOTHYRONINE INCREASED [None]
